FAERS Safety Report 7578224-4 (Version None)
Quarter: 2011Q2

REPORT INFORMATION
  Report Type: 
  Country: None (occurrence: None)
  Receive Date: 20110628
  Receipt Date: 20110620
  Transmission Date: 20111010
  Serious: Yes (Other)
  Sender: FDA-Public Use
  Company Number: B0727960A

PATIENT
  Age: 47 Year
  Sex: Male

DRUGS (1)
  1. LAMICTAL [Suspect]
     Indication: SCHIZOPHRENIA
     Dosage: 200MG PER DAY
     Route: 048

REACTIONS (1)
  - AGGRESSION [None]
